FAERS Safety Report 16249342 (Version 4)
Quarter: 2020Q3

REPORT INFORMATION
  Report Type: Report from Study
  Country: US (occurrence: US)
  Receive Date: 20190429
  Receipt Date: 20200715
  Transmission Date: 20201102
  Serious: Yes (Hospitalization)
  Sender: FDA-Public Use
  Company Number: US-SA-2019SA111909

PATIENT

DRUGS (2)
  1. ALEMTUZUMAB [Suspect]
     Active Substance: ALEMTUZUMAB
     Indication: RELAPSING MULTIPLE SCLEROSIS
     Dosage: 12 MG, QD
     Route: 041
     Dates: start: 20171211, end: 20171215
  2. ALEMTUZUMAB [Suspect]
     Active Substance: ALEMTUZUMAB
     Indication: MULTIPLE SCLEROSIS
     Dosage: 12 MG, QD
     Route: 041
     Dates: start: 20181217, end: 20181219

REACTIONS (5)
  - Abdominal pain [Unknown]
  - Self-induced vomiting [Unknown]
  - CD4 lymphocytes decreased [Unknown]
  - Full blood count decreased [Unknown]
  - Appendicectomy [Unknown]

NARRATIVE: CASE EVENT DATE: 2019
